FAERS Safety Report 4960856-0 (Version None)
Quarter: 2006Q2

REPORT INFORMATION
  Report Type: 
  Country: None (occurrence: None)
  Receive Date: 20060403
  Receipt Date: 20060323
  Transmission Date: 20061013
  Serious: Yes (Life-Threatening, Hospitalization)
  Sender: FDA-Public Use
  Company Number: NL-ROCHE-441693

PATIENT
  Age: 63 Year
  Sex: Female

DRUGS (4)
  1. CAPECITABINE [Suspect]
     Dosage: ON DAY 1-14 EVERY THREE WEEKS
     Route: 048
     Dates: start: 20060315
  2. AVASTIN [Suspect]
     Route: 042
     Dates: start: 20060315
  3. OXALIPLATIN [Suspect]
     Route: 042
     Dates: start: 20060315
  4. ATENOLOL [Concomitant]

REACTIONS (2)
  - NAUSEA [None]
  - VOMITING [None]
